FAERS Safety Report 8806405 (Version 1)
Quarter: 2012Q4

REPORT INFORMATION
  Report Type: Spontaneous
  Country: US (occurrence: None)
  Receive Date: 20120918
  Receipt Date: 20120918
  Transmission Date: 20130627
  Serious: Yes (Hospitalization)
  Sender: FDA-Public Use
  Company Number: B0829789A

PATIENT
  Age: 70 Year
  Sex: Male

DRUGS (1)
  1. CLINDAMYCIN [Suspect]
     Indication: CELLULITIS

REACTIONS (4)
  - Fatigue [None]
  - Myalgia [None]
  - Tubulointerstitial nephritis [None]
  - Eosinophilia [None]
